FAERS Safety Report 6033953-9 (Version None)
Quarter: 2009Q1

REPORT INFORMATION
  Report Type: 
  Country: None (occurrence: None)
  Receive Date: 20090108
  Receipt Date: 20081223
  Transmission Date: 20090719
  Serious: Yes (Death)
  Sender: FDA-Public Use
  Company Number: 000103

PATIENT
  Age: 48 Year
  Sex: Male

DRUGS (3)
  1. ALPRAZOLAM [Suspect]
  2. ESCITALOPRAM [Suspect]
  3. LAMOTRIGINE [Suspect]

REACTIONS (3)
  - ASPIRATION [None]
  - COMPLETED SUICIDE [None]
  - INTENTIONAL DRUG MISUSE [None]
